FAERS Safety Report 8079251-3 (Version None)
Quarter: 2012Q1

REPORT INFORMATION
  Report Type: 
  Country: None (occurrence: None)
  Receive Date: 20120128
  Receipt Date: 20110817
  Transmission Date: 20120608
  Serious: No
  Sender: FDA-Public Use
  Company Number: US-ABBOTT-11P-163-0847466-00

PATIENT
  Age: 43 Year
  Sex: Female

DRUGS (5)
  1. PLAQUENIL [Concomitant]
     Indication: RHEUMATOID ARTHRITIS
     Dosage: DAILY
  2. XANAX [Concomitant]
     Indication: ANXIETY
  3. LORTAB [Concomitant]
     Indication: ARTHRALGIA
     Dosage: 10/500MG
  4. HUMIRA [Suspect]
     Indication: RHEUMATOID ARTHRITIS
     Dates: start: 20110701
  5. AMBIEN [Concomitant]
     Indication: INSOMNIA
     Dosage: AT BEDTIME

REACTIONS (1)
  - ARTHRALGIA [None]
